FAERS Safety Report 8875575 (Version 1)
Quarter: 2012Q4

REPORT INFORMATION
  Report Type: 
  Country: US (occurrence: US)
  Receive Date: 20121030
  Receipt Date: 20121030
  Transmission Date: 20130627
  Serious: No
  Sender: FDA-Public Use
  Company Number: US-ABBOTT-12P-163-0955146-00

PATIENT
  Sex: Female
  Weight: 44.49 kg

DRUGS (7)
  1. KALETRA [Suspect]
     Indication: ACQUIRED IMMUNODEFICIENCY SYNDROME
     Dosage: Tablet 2 am 2pm
  2. COMBIVIR [Concomitant]
     Indication: HIV INFECTION
  3. MEGACE [Concomitant]
     Indication: INCREASED APPETITE
  4. ACYCLOVIR [Concomitant]
     Indication: HERPES SIMPLEX
     Dosage: As needed for breakouts
  5. HYDROCODONE W/ACETAMINOPHEN [Concomitant]
     Indication: ARTHRALGIA
  6. VALIUM [Concomitant]
     Indication: ANXIETY
  7. VALIUM [Concomitant]

REACTIONS (7)
  - Urinary tract infection [Recovered/Resolved]
  - Renal disorder [Not Recovered/Not Resolved]
  - Diarrhoea [Not Recovered/Not Resolved]
  - Blood pressure increased [Not Recovered/Not Resolved]
  - Blood glucose increased [Not Recovered/Not Resolved]
  - Decreased appetite [Not Recovered/Not Resolved]
  - Tooth fracture [Not Recovered/Not Resolved]
